FAERS Safety Report 9988211 (Version 1)
Quarter: 2014Q1

REPORT INFORMATION
  Report Type: Report from Study
  Country: US (occurrence: US)
  Receive Date: 20140309
  Receipt Date: 20140309
  Transmission Date: 20141002
  Serious: Yes (Other)
  Sender: FDA-Public Use
  Company Number: PHEH2014US004629

PATIENT
  Sex: Male

DRUGS (4)
  1. DIOVAN HCT [Suspect]
     Dosage: 1 DF, PER DAY (160MG VALS AND 25MG VILD)
  2. GABAPENTIN [Concomitant]
     Dosage: 300 MG, UNK
  3. KOMBIGLYZE [Concomitant]
     Dosage: UNK UKN, UNK
  4. ATORVASTATIN [Concomitant]
     Dosage: UNK UKN, UNK

REACTIONS (3)
  - Type 2 diabetes mellitus [Unknown]
  - Neuropathy peripheral [Unknown]
  - Pain in extremity [Unknown]
